FAERS Safety Report 8654000 (Version 2)
Quarter: 2012Q4

REPORT INFORMATION
  Report Type: 
  Country: US (occurrence: US)
  Receive Date: 20120709
  Receipt Date: 20120926
  Transmission Date: 20130627
  Serious: Yes (Other)
  Sender: FDA-Public Use
  Company Number: US-BAYER-2012-067425

PATIENT
  Age: 34 Year
  Sex: Female

DRUGS (1)
  1. MIRENA [Suspect]
     Indication: MENORRHAGIA
     Dosage: 20 ?g/d, CONT
     Route: 015
     Dates: start: 20120411, end: 20120627

REACTIONS (5)
  - Ruptured ectopic pregnancy [Recovered/Resolved]
  - Pain [Recovered/Resolved]
  - Peritoneal haemorrhage [None]
  - Vaginal haemorrhage [None]
  - Anaemia [None]
